FAERS Safety Report 17952910 (Version 1)
Quarter: 2020Q2

REPORT INFORMATION
  Report Type: Spontaneous
  Country: US (occurrence: US)
  Receive Date: 20200627
  Receipt Date: 20200627
  Transmission Date: 20200714
  Serious: No
  Sender: FDA-Public Use
  Company Number: US-ASTRAZENECA-2020SE78992

PATIENT
  Age: 67 Year
  Sex: Female
  Weight: 72.6 kg

DRUGS (3)
  1. IBRANCE [Suspect]
     Active Substance: PALBOCICLIB
     Indication: BREAST CANCER
     Dosage: DAILY
     Route: 048
     Dates: start: 20200218
  2. LOSARTAN. [Concomitant]
     Active Substance: LOSARTAN
     Indication: BLOOD PRESSURE MEASUREMENT
     Route: 050
     Dates: start: 2019
  3. FASLODEX [Suspect]
     Active Substance: FULVESTRANT
     Indication: BREAST CANCER RECURRENT
     Route: 030
     Dates: start: 20200218

REACTIONS (3)
  - Injection site pain [Unknown]
  - Injection site mass [Unknown]
  - Injection site bruising [Unknown]

NARRATIVE: CASE EVENT DATE: 2020
